FAERS Safety Report 5261792-5 (Version None)
Quarter: 2007Q1

REPORT INFORMATION
  Report Type: 
  Country: None (occurrence: None)
  Receive Date: 20061208
  Receipt Date: 20060418
  Transmission Date: 20070707
  Serious: Yes (Other)
  Sender: FDA-Public Use
  Company Number: USA-2006-0024030

PATIENT
  Age: 35 Year
  Sex: Male
  Weight: 98 kg

DRUGS (4)
  1. OXYCONTIN [Suspect]
     Indication: BACK PAIN
     Dosage: 20 MG, Q12H
     Dates: start: 20040901, end: 20050101
  2. SINGULAIR [Concomitant]
  3. ZYRTEC [Concomitant]
  4. GUAIFENEX PSE [Concomitant]

REACTIONS (8)
  - AGITATION [None]
  - DRUG DEPENDENCE [None]
  - DRUG WITHDRAWAL SYNDROME [None]
  - FORMICATION [None]
  - HYPERHIDROSIS [None]
  - INSOMNIA [None]
  - RESTLESSNESS [None]
  - TENSION [None]
